FAERS Safety Report 9970309 (Version 1)
Quarter: 2014Q1

REPORT INFORMATION
  Report Type: Spontaneous
  Country: US (occurrence: None)
  Receive Date: 20140304
  Receipt Date: 20140304
  Transmission Date: 20141002
  Serious: Yes (Life-Threatening)
  Sender: FDA-Public Use
  Company Number: 171347-2014-99913

PATIENT
  Age: 67 Year
  Sex: Female
  Weight: 68.1 kg

DRUGS (3)
  1. STAY SAFE 2.5% DEX. LM/LC 2L [Suspect]
     Indication: RENAL FAILURE
     Route: 033
  2. STAY SAFE 2.5% DEX. LM/LC 2L [Suspect]
     Indication: DIALYSIS
     Route: 033
  3. LIBERTY CYCLER [Concomitant]

REACTIONS (3)
  - Peritonitis [None]
  - Peritoneal effluent leukocyte count increased [None]
  - Abdominal discomfort [None]
